FAERS Safety Report 5401465-9 (Version None)
Quarter: 2007Q3

REPORT INFORMATION
  Report Type: 
  Country: None (occurrence: None)
  Receive Date: 20070726
  Receipt Date: 20070716
  Transmission Date: 20080115
  Serious: Yes (Other)
  Sender: FDA-Public Use
  Company Number: OSCN-NO-0707L-0294

PATIENT
  Age: 38 Year
  Sex: Female

DRUGS (2)
  1. OMNISCAN [Suspect]
     Indication: RENAL ARTERY THROMBOSIS
     Dosage: 0.1 MMOL/KG, SINGLE DOSE
     Dates: start: 20050801, end: 20050801
  2. EPOGEN [Concomitant]

REACTIONS (3)
  - BIOPSY SKIN ABNORMAL [None]
  - LEUKOCYTOSIS [None]
  - SKIN DISCOLOURATION [None]
